FAERS Safety Report 4773028-X (Version None)
Quarter: 2005Q3

REPORT INFORMATION
  Report Type: 
  Country: None (occurrence: None)
  Receive Date: 20050916
  Receipt Date: 20050907
  Transmission Date: 20060218
  Serious: Yes (Other)
  Sender: FDA-Public Use
  Company Number: 2005125450

PATIENT
  Age: 78 Year
  Sex: Female

DRUGS (9)
  1. NEURONTIN [Suspect]
     Indication: PAIN IN EXTREMITY
     Dosage: 900 MG (300 MG, 3 IN 1 D)
  2. LISINOPRIL [Concomitant]
  3. ATENOLOL [Concomitant]
  4. PLENDIL (FELOPIDINE) [Concomitant]
  5. PRANDIN [Concomitant]
  6. LANTUS [Concomitant]
  7. LASIX [Concomitant]
  8. MAGNESIUM (MAGNESIUM) [Concomitant]
  9. CENTRUM (MINERALS NOS, VITAMINS NOS) [Concomitant]

REACTIONS (9)
  - BONE DENSITY DECREASED [None]
  - CERUMEN IMPACTION [None]
  - DEAFNESS UNILATERAL [None]
  - DECREASED ACTIVITY [None]
  - INSOMNIA [None]
  - OSTEOMALACIA [None]
  - PELVIC FRACTURE [None]
  - UPPER LIMB FRACTURE [None]
  - WEIGHT INCREASED [None]
